FAERS Safety Report 6783322-9 (Version None)
Quarter: 2010Q2

REPORT INFORMATION
  Report Type: 
  Country: None (occurrence: None)
  Receive Date: 20100617
  Receipt Date: 20100608
  Transmission Date: 20101027
  Serious: Yes (Hospitalization)
  Sender: FDA-Public Use
  Company Number: 2010JP001874

PATIENT
  Age: 77 Year
  Sex: Female
  Weight: 59.6 kg

DRUGS (7)
  1. VESICARE [Suspect]
     Indication: HYPERTONIC BLADDER
     Dosage: 5 MG, UID/QD, ORAL
     Route: 048
     Dates: start: 20100303, end: 20100317
  2. LOSARTAN POTASSIUM AND HYDROCHLOROTHIAZIDE [Concomitant]
  3. LIPITOR [Concomitant]
  4. STOGAR (LAFUTIDINE) TABLET [Concomitant]
  5. SENNOSIDE (SENNOSIDE A+B) [Concomitant]
  6. CANDESARTAN CILEXETIL [Concomitant]
  7. ALLOPURINOL [Concomitant]

REACTIONS (6)
  - DIZZINESS [None]
  - DRUG LEVEL INCREASED [None]
  - DYSSTASIA [None]
  - HYPOTENSION [None]
  - RENAL FAILURE ACUTE [None]
  - SLUGGISHNESS [None]
